FAERS Safety Report 24777227 (Version 1)
Quarter: 2024Q4

REPORT INFORMATION
  Report Type: Spontaneous
  Country: DE (occurrence: DE)
  Receive Date: 20241226
  Receipt Date: 20241226
  Transmission Date: 20250115
  Serious: Yes (Other)
  Sender: TORRENT PHARMA INC.
  Company Number: None

PATIENT
  Age: 56 Year
  Sex: Female
  Weight: 60 kg

DRUGS (1)
  1. DULOXETINE [Suspect]
     Active Substance: DULOXETINE
     Indication: Myalgia
     Dosage: 30 MG
     Route: 048
     Dates: start: 20240115, end: 20240130

REACTIONS (3)
  - Suicidal ideation [Recovering/Resolving]
  - Nausea [Recovering/Resolving]
  - Feeling abnormal [Unknown]

NARRATIVE: CASE EVENT DATE: 20240115
